FAERS Safety Report 25664250 (Version 1)
Quarter: 2025Q3

REPORT INFORMATION
  Report Type: Spontaneous
  Country: US (occurrence: US)
  Receive Date: 20250811
  Receipt Date: 20250811
  Transmission Date: 20251021
  Serious: Yes (Other)
  Sender: GLENMARK
  Company Number: US-MLMSERVICE-20250728-PI589851-00306-2

PATIENT
  Age: 54 Year
  Sex: Male

DRUGS (2)
  1. TACROLIMUS [Suspect]
     Active Substance: TACROLIMUS
     Indication: Immunosuppressant drug therapy
     Dosage: 5 MILLIGRAM BID (EVERY 12 HOURS), TITRATED TO A TARGET TROUGH LEVEL OF 8-10 NG/ML
     Route: 065
  2. PREDNISONE [Concomitant]
     Active Substance: PREDNISONE
     Indication: Immunosuppressant drug therapy
     Dosage: 20 MILLIGRAM, QD
     Route: 065

REACTIONS (2)
  - Necrotising oesophagitis [Recovered/Resolved]
  - Oesophageal stenosis [Recovered/Resolved]
